FAERS Safety Report 15324862 (Version 22)
Quarter: 2020Q3

REPORT INFORMATION
  Report Type: Spontaneous
  Country: CA (occurrence: CA)
  Receive Date: 20180828
  Receipt Date: 20200921
  Transmission Date: 20201102
  Serious: Yes (Other)
  Sender: FDA-Public Use
  Company Number: CA-CELLTRION INC.-2018CA022148

PATIENT

DRUGS (22)
  1. INFLECTRA [Suspect]
     Active Substance: INFLIXIMAB-DYYB
     Dosage: 300 MG, EVERY 6 WEEKS
     Route: 042
     Dates: start: 20190220, end: 20190912
  2. INFLECTRA [Suspect]
     Active Substance: INFLIXIMAB-DYYB
     Dosage: 300 MG (EVERY 6 WEEKS)
     Route: 042
     Dates: start: 20190508
  3. MIRTAZAPINE. [Concomitant]
     Active Substance: MIRTAZAPINE
     Dosage: UNK
     Route: 065
  4. DIPHENHYDRAMIN [Concomitant]
     Active Substance: DIPHENHYDRAMINE
     Indication: PREMEDICATION
     Dosage: UNK
     Route: 042
  5. INFLECTRA [Suspect]
     Active Substance: INFLIXIMAB-DYYB
     Dosage: 300 MG, EVERY 0, 2, 6 WEEKS, THEN EVERY 8 WEEKS
     Route: 042
     Dates: start: 20180912
  6. INFLECTRA [Suspect]
     Active Substance: INFLIXIMAB-DYYB
     Dosage: 300 MG (EVERY 6 WEEKS)
     Route: 042
     Dates: start: 20190401
  7. SYNTHROID [Concomitant]
     Active Substance: LEVOTHYROXINE SODIUM
     Dosage: UNK
     Route: 065
  8. MORPHINE [Concomitant]
     Active Substance: MORPHINE
     Indication: BOWEL MOVEMENT IRREGULARITY
     Dosage: 10 MG, UNK
     Route: 065
  9. INFLECTRA [Suspect]
     Active Substance: INFLIXIMAB-DYYB
     Dosage: 300 MG, EVERY 0, 2, 6 WEEKS, THEN EVERY 8 WEEKS
     Route: 042
     Dates: start: 20180801, end: 20181107
  10. INFLECTRA [Suspect]
     Active Substance: INFLIXIMAB-DYYB
     Dosage: 300 MG, EVERY 4 WEEKS
     Dates: start: 20181213, end: 20190109
  11. INFLECTRA [Suspect]
     Active Substance: INFLIXIMAB-DYYB
     Dosage: 300 MG (EVERY 6 WEEKS)
     Route: 042
     Dates: start: 20190508
  12. PREDNISONE. [Concomitant]
     Active Substance: PREDNISONE
     Dosage: UNK
     Route: 065
  13. HYDROCORTISONE. [Concomitant]
     Active Substance: HYDROCORTISONE
     Indication: PREMEDICATION
     Dosage: 100 MG, UNK
     Route: 042
  14. INFLECTRA [Suspect]
     Active Substance: INFLIXIMAB-DYYB
     Dosage: 300 MG, EVERY 4 WEEKS
     Route: 042
     Dates: start: 20190109
  15. IMOVANE [Concomitant]
     Active Substance: ZOPICLONE
     Dosage: UNK
     Route: 065
  16. DIPHENHYDRAMIN [Concomitant]
     Active Substance: DIPHENHYDRAMINE
     Dosage: 50 MG, UNK
     Route: 048
  17. INFLECTRA [Suspect]
     Active Substance: INFLIXIMAB-DYYB
     Dosage: 300 MG (EVERY 6 WEEKS)
     Route: 042
     Dates: start: 20190620
  18. INFLECTRA [Suspect]
     Active Substance: INFLIXIMAB-DYYB
     Dosage: 300 MG (EVERY 6 WEEKS)
     Route: 042
     Dates: start: 20190912, end: 20190912
  19. METHOTREXATE. [Concomitant]
     Active Substance: METHOTREXATE
     Dosage: UNK
     Route: 065
  20. INFLECTRA [Suspect]
     Active Substance: INFLIXIMAB-DYYB
     Indication: CROHN^S DISEASE
     Dosage: 300 MG, EVERY 0, 2, 6 WEEKS, THEN EVERY 8 WEEKS
     Route: 042
     Dates: start: 20180801
  21. INFLECTRA [Suspect]
     Active Substance: INFLIXIMAB-DYYB
     Dosage: 300 MG, EVERY 0, 2, 6 WEEKS, THEN EVERY 8 WEEKS
     Route: 042
     Dates: start: 20180816
  22. INFLECTRA [Suspect]
     Active Substance: INFLIXIMAB-DYYB
     Dosage: 300 MG, EVERY 0, 2, 6 WEEKS, THEN EVERY 8 WEEKS
     Dates: start: 20181106

REACTIONS (21)
  - Intentional product use issue [Unknown]
  - Chest discomfort [Recovered/Resolved]
  - Sinusitis [Not Recovered/Not Resolved]
  - Cough [Unknown]
  - Malaise [Recovering/Resolving]
  - Wheezing [Unknown]
  - Pyrexia [Recovered/Resolved]
  - Off label use [Unknown]
  - Atypical mycobacterial lymphadenitis [Unknown]
  - Clostridium difficile colitis [Not Recovered/Not Resolved]
  - Burning sensation [Unknown]
  - Arthralgia [Unknown]
  - Intestinal obstruction [Recovering/Resolving]
  - Headache [Unknown]
  - Abdominal pain upper [Unknown]
  - Pulmonary mass [Unknown]
  - Paraesthesia [Recovered/Resolved]
  - Rhinorrhoea [Recovering/Resolving]
  - Condition aggravated [Recovering/Resolving]
  - Infection [Unknown]
  - Off label use [Unknown]

NARRATIVE: CASE EVENT DATE: 2018
